FAERS Safety Report 8987822 (Version 7)
Quarter: 2019Q3

REPORT INFORMATION
  Report Type: Spontaneous
  Country: US (occurrence: US)
  Receive Date: 20121227
  Receipt Date: 20190827
  Transmission Date: 20191005
  Serious: No
  Sender: FDA-Public Use
  Company Number: US-PFIZER INC-2012323181

PATIENT
  Age: 57 Year
  Sex: Female
  Weight: 122.45 kg

DRUGS (1)
  1. TETRACYCLINE HCL [Suspect]
     Active Substance: TETRACYCLINE HYDROCHLORIDE
     Dosage: UNK

REACTIONS (5)
  - Erythema [Unknown]
  - Drug hypersensitivity [Unknown]
  - Urticaria [Unknown]
  - Drug eruption [Unknown]
  - Pruritus allergic [Unknown]
